FAERS Safety Report 9435289 (Version 2)
Quarter: 2013Q3

REPORT INFORMATION
  Report Type: Spontaneous
  Country: US (occurrence: US)
  Receive Date: 20130801
  Receipt Date: 20130918
  Transmission Date: 20140515
  Serious: No
  Sender: FDA-Public Use
  Company Number: US-B.I. PHARMACEUTICALS,INC./RIDGEFIELD-2013-BI-22081BP

PATIENT
  Age: 74 Year
  Sex: Female
  Weight: 69 kg

DRUGS (27)
  1. COMBIVENT [Suspect]
     Indication: ASTHMA
     Dosage: STRENGTH: 18 MCG / 103 MCG; DAILY DOSE: 144 MCG/824 MCG
     Route: 055
     Dates: start: 201301, end: 20130721
  2. COMBIVENT [Suspect]
     Indication: ASTHMA
     Dosage: STRENGTH: 20 MCG / 100 MCG; DAILY DOSE: 80 MCG/400
     Route: 055
     Dates: start: 20130723
  3. COMBIVENT [Suspect]
     Indication: ASTHMA
     Dosage: FORMULATION:- MDI; DOSE:- 2 PUFFS AT 4 PM SOB
     Dates: start: 2005
  4. COMBIVENT [Suspect]
     Indication: COUGH
  5. HYDROXYCHLOROQUINE SULFATE [Concomitant]
     Dosage: 200 MG
     Route: 048
  6. ALLERGY EYE [Concomitant]
     Dosage: ROUTE:- OPHTHALMIC; STRENGTH AND DAILY DOSE:- .025 %
  7. ADVAIR DISKUS [Concomitant]
     Dosage: STRENGTH:- 250MCG-50MCG/DOSE
     Route: 055
  8. SINGULAIR [Concomitant]
     Dosage: 10 MG
     Route: 048
  9. NABUMETONE [Concomitant]
     Dosage: 1000 MG
     Route: 048
  10. BISOPROLOL FUMARATE [Concomitant]
     Dosage: 5 MG
     Route: 048
  11. COMBIVENT [Concomitant]
     Dosage: 18MCG-103MCG (90MCG)/ACTUATION
     Route: 055
  12. GABAPENTIN [Concomitant]
     Dosage: DAILY DOSE : 100 MG
     Route: 048
  13. BABY ASPIRIN [Concomitant]
     Dosage: 81 MG
     Route: 048
  14. AMLODIPINE BESYLATE [Concomitant]
     Dosage: 2.5 MG
     Route: 048
  15. FOLIC ACID [Concomitant]
     Dosage: 15 MG
     Route: 048
  16. LEVOTHYROXINE SODIUM [Concomitant]
     Dosage: 100 MCG
     Route: 048
  17. MULTIVITAMINS W-FLUORIDE-IRON [Concomitant]
     Dosage: .25 MG/ML
  18. METHOTREXATE SODIUM [Concomitant]
     Dosage: 2.5 MG
     Route: 048
  19. VENLAFAXINE HCL [Concomitant]
     Dosage: 75 MG
     Route: 048
  20. VITAMIN D2 [Concomitant]
     Dosage: 50000 UNIT
     Route: 048
  21. VITAMIN D2 [Concomitant]
     Dosage: 50000 UNIT
     Route: 048
  22. ALENDRONATE SODIUM [Concomitant]
     Dosage: 70MG/75ML
     Route: 048
  23. SYSTANE [Concomitant]
     Dosage: .3%-.4%
  24. FLUOROMETHOLONE [Concomitant]
     Dosage: ROUTE:- OPHTHALMIC; STRENGTH AND DAILY DOSE:- 0.1%
  25. FISH OIL [Concomitant]
     Dosage: FORMULATION:- SOFT JELL CAPS; STRENGTH AND DAILY DOSE:- 700MG
  26. ALLEGRA 24 HR [Concomitant]
  27. ESTROVEN NIGHTTIME [Concomitant]
     Dosage: 1000 UNIT

REACTIONS (5)
  - Off label use [Not Recovered/Not Resolved]
  - Off label use [Recovered/Resolved]
  - Choking [Recovered/Resolved]
  - Increased upper airway secretion [Recovered/Resolved]
  - Cough [Recovered/Resolved]
